FAERS Safety Report 9461304 (Version 3)
Quarter: 2013Q3

REPORT INFORMATION
  Report Type: Spontaneous
  Country: US (occurrence: US)
  Receive Date: 20130816
  Receipt Date: 20130920
  Transmission Date: 20140515
  Serious: No
  Sender: FDA-Public Use
  Company Number: US-PFIZER INC-2013234755

PATIENT
  Age: 16 Year
  Sex: Male

DRUGS (4)
  1. GENOTROPIN [Suspect]
     Indication: GROWTH RETARDATION
     Dosage: 1.3 MG, 1X/DAY
     Route: 058
     Dates: start: 20130722
  2. FISH OIL [Concomitant]
     Dosage: UNK
  3. CALCIUM [Concomitant]
     Dosage: 500 TAB
  4. MULTIVITAMINS [Concomitant]

REACTIONS (2)
  - Arthralgia [Recovered/Resolved]
  - Headache [Recovered/Resolved]
